FAERS Safety Report 6377389-X (Version None)
Quarter: 2009Q3

REPORT INFORMATION
  Report Type: 
  Country: None (occurrence: None)
  Receive Date: 20090923
  Receipt Date: 20090923
  Transmission Date: 20100115
  Serious: Yes (Hospitalization)
  Sender: FDA-Public Use
  Company Number: None

PATIENT
  Age: 39 Year
  Sex: Female
  Weight: 78.2 kg

DRUGS (5)
  1. TYLENOL (CAPLET) [Suspect]
     Indication: PAIN
     Dosage: PO
     Route: 048
  2. METOPROLOL SUCCINATE [Concomitant]
  3. TRAZODONE HCL [Concomitant]
  4. CITALOPRAM HYDROBROMIDE [Concomitant]
  5. TOPIRAMATE [Concomitant]

REACTIONS (6)
  - ACUTE HEPATIC FAILURE [None]
  - CHEST PAIN [None]
  - DYSPEPSIA [None]
  - INTENTIONAL DRUG MISUSE [None]
  - LIVER TRANSPLANT [None]
  - SOMNOLENCE [None]
